FAERS Safety Report 4861465-4 (Version None)
Quarter: 2005Q4

REPORT INFORMATION
  Report Type: 
  Country: None (occurrence: None)
  Receive Date: 20051220
  Receipt Date: 20051211
  Transmission Date: 20060501
  Serious: Yes (Hospitalization)
  Sender: FDA-Public Use
  Company Number: BR-JNJFOC-20051204061

PATIENT
  Age: 3 Year

DRUGS (1)
  1. HALDOL [Suspect]
     Route: 048

REACTIONS (5)
  - ACCIDENTAL EXPOSURE [None]
  - EXTRAPYRAMIDAL DISORDER [None]
  - HYPERTONIA [None]
  - SOPOR [None]
  - TREMOR [None]
